FAERS Safety Report 6546792-7 (Version None)
Quarter: 2010Q1

REPORT INFORMATION
  Report Type: 
  Country: None (occurrence: None)
  Receive Date: 20100122
  Receipt Date: 20100113
  Transmission Date: 20100710
  Serious: Yes (Other)
  Sender: FDA-Public Use
  Company Number: US-SANOFI-AVENTIS-2010SA002569

PATIENT
  Age: 80 Year
  Sex: Male

DRUGS (7)
  1. LANTUS [Suspect]
     Indication: TYPE 2 DIABETES MELLITUS
     Dosage: DOSE:70 UNIT(S)
     Route: 058
     Dates: start: 20091201
  2. LANTUS [Suspect]
     Dosage: 60 -68 UNITS DAILY
     Route: 058
     Dates: start: 20050301, end: 20091201
  3. OPTICLICK [Suspect]
     Indication: TYPE 2 DIABETES MELLITUS
     Dates: start: 20061101
  4. NOVOLOG [Concomitant]
     Dosage: PER SLIDING SCALE
  5. PLAVIX [Concomitant]
  6. ASPIRIN [Concomitant]
  7. ALL OTHER THERAPEUTIC PRODUCTS [Concomitant]

REACTIONS (1)
  - CORONARY ARTERY OCCLUSION [None]
